FAERS Safety Report 5492379-7 (Version None)
Quarter: 2007Q4

REPORT INFORMATION
  Report Type: 
  Country: None (occurrence: None)
  Receive Date: 20071015
  Receipt Date: 20070814
  Transmission Date: 20080405
  Serious: No
  Sender: FDA-Public Use
  Company Number: 2007SP002850

PATIENT
  Age: 88 Year
  Sex: Female
  Weight: 56.6996 kg

DRUGS (6)
  1. LUNESTA [Suspect]
     Indication: INSOMNIA
     Dosage: 2 MG;PRN;ORAL, 3 MG;PRN;ORAL
     Route: 048
     Dates: start: 20070101, end: 20070701
  2. LUNESTA [Suspect]
     Indication: INSOMNIA
     Dosage: 2 MG;PRN;ORAL, 3 MG;PRN;ORAL
     Route: 048
     Dates: start: 20070701
  3. LEVOTHYROXINE SODIUM [Concomitant]
  4. ATORVASTATIN CALCIUM [Concomitant]
  5. VITAMINS [Concomitant]
  6. AMBIEN [Concomitant]

REACTIONS (2)
  - DRUG INEFFECTIVE [None]
  - MIDDLE INSOMNIA [None]
